FAERS Safety Report 9303022 (Version 2)
Quarter: 2013Q3

REPORT INFORMATION
  Report Type: Spontaneous
  Country: US (occurrence: US)
  Receive Date: 20130522
  Receipt Date: 20130704
  Transmission Date: 20140515
  Serious: Yes (Other)
  Sender: FDA-Public Use
  Company Number: US-PFIZER INC-2013151481

PATIENT
  Age: 62 Year
  Sex: Female
  Weight: 82 kg

DRUGS (8)
  1. GLUCOTROL XL [Suspect]
     Indication: DIABETES MELLITUS
     Dosage: 5 MG, 1X/DAY
     Route: 048
     Dates: start: 1999
  2. GLUCOTROL XL [Suspect]
     Dosage: 5 MG, 2X/DAY
     Route: 048
  3. GLUCOTROL XL [Suspect]
     Dosage: 10 MG, 2X/DAY (BID)
     Route: 048
  4. PRILOSEC [Concomitant]
     Indication: GASTRIC DISORDER
     Dosage: UNK, 1X/DAY
  5. PRILOSEC [Concomitant]
     Indication: IRRITABLE BOWEL SYNDROME
  6. PERCOCET [Concomitant]
     Indication: PAIN
     Dosage: UNK
  7. LISINOPRIL [Concomitant]
     Dosage: UNK
  8. LIPITOR [Concomitant]
     Dosage: UNK

REACTIONS (4)
  - Uterine cancer [Unknown]
  - Diabetes mellitus [Unknown]
  - Blood glucose increased [Unknown]
  - Blood glucose fluctuation [Unknown]
